FAERS Safety Report 12525673 (Version 2)
Quarter: 2016Q3

REPORT INFORMATION
  Report Type: Spontaneous
  Country: JP (occurrence: JP)
  Receive Date: 20160705
  Receipt Date: 20160722
  Transmission Date: 20161109
  Serious: Yes (Hospitalization, Other)
  Sender: FDA-Public Use
  Company Number: JP-AMGEN-JPNSP2016086818

PATIENT
  Age: 65 Year
  Sex: Female
  Weight: 45 kg

DRUGS (65)
  1. G-LASTA [Suspect]
     Active Substance: PEGFILGRASTIM
     Indication: COLONY STIMULATING FACTOR PROPHYLAXIS
     Dosage: 3.6 MG, 1X/2WEEKS
     Route: 058
     Dates: start: 20160130, end: 20160130
  2. G-LASTA [Suspect]
     Active Substance: PEGFILGRASTIM
     Dosage: 3.6 MG, 1X/2WEEKS
     Route: 058
     Dates: start: 20160213, end: 20160213
  3. CYCLOPHOSPHAMIDE. [Suspect]
     Active Substance: CYCLOPHOSPHAMIDE
     Dosage: 2550 MG, UNK
     Route: 041
     Dates: start: 20160212, end: 20160212
  4. DECADRON [Concomitant]
     Active Substance: DEXAMETHASONE
     Dosage: 4 MG, BID
     Route: 048
     Dates: start: 20160129, end: 20160131
  5. MAGMITT [Concomitant]
     Active Substance: MAGNESIUM OXIDE
     Dosage: 500 MG, TID
     Route: 048
     Dates: start: 20160212, end: 20160218
  6. CRAVIT [Concomitant]
     Active Substance: LEVOFLOXACIN
     Dosage: 5 ML, TID
     Route: 047
     Dates: start: 20160315, end: 20160315
  7. DICLOD [Concomitant]
     Active Substance: DICLOFENAC SODIUM
     Dosage: 10 ML, UNK
     Route: 047
     Dates: start: 20160306, end: 20160306
  8. RINDERON A [Concomitant]
     Active Substance: BETAMETHASONE SODIUM PHOSPHATE\NEOMYCIN SULFATE
     Dosage: 2 DF, UNK
     Route: 065
     Dates: start: 20160306, end: 20160306
  9. G-LASTA [Suspect]
     Active Substance: PEGFILGRASTIM
     Dosage: 3.6 MG, 1X/2WEEKS
     Route: 058
     Dates: start: 20160312, end: 20160312
  10. CYCLOPHOSPHAMIDE. [Suspect]
     Active Substance: CYCLOPHOSPHAMIDE
     Dosage: 2550 MG, UNK
     Route: 041
     Dates: start: 20160226, end: 20160226
  11. EPIRUBICIN HYDROCHLORIDE. [Suspect]
     Active Substance: EPIRUBICIN HYDROCHLORIDE
     Indication: BREAST CANCER
     Dosage: 140 MG, UNK
     Route: 041
     Dates: start: 20151218, end: 20151218
  12. DECADRON [Concomitant]
     Active Substance: DEXAMETHASONE
     Dosage: 6.6 MG, 1X/2WEEKS
     Route: 041
     Dates: start: 20160129, end: 20160226
  13. SEISHOKU [Concomitant]
     Active Substance: SODIUM CHLORIDE
     Dosage: 500 ML, 1X/2WEEKS
     Route: 041
     Dates: start: 20160212, end: 20160226
  14. FOSFOMYCIN SODIUM [Concomitant]
     Active Substance: FOSFOMYCIN SODIUM
     Dosage: 1 G, QD
     Route: 042
     Dates: start: 20160307, end: 20160307
  15. LOXOPROFEN [Concomitant]
     Active Substance: LOXOPROFEN
     Dosage: 50 MG, TID
     Route: 048
     Dates: start: 20160129, end: 20160131
  16. SANPILO [Concomitant]
     Active Substance: PILOCARPINE HYDROCHLORIDE
     Dosage: 5 ML, QD
     Route: 047
     Dates: start: 20160226, end: 20160226
  17. HIRUDOID                           /00723701/ [Concomitant]
     Active Substance: PENTOSAN POLYSULFATE SODIUM
     Dosage: 25 G, UNK
     Route: 061
     Dates: start: 20160311, end: 20160311
  18. G-LASTA [Suspect]
     Active Substance: PEGFILGRASTIM
     Dosage: 3.6 MG, 1X/2WEEKS
     Route: 058
     Dates: start: 20160227, end: 20160227
  19. CYCLOPHOSPHAMIDE. [Suspect]
     Active Substance: CYCLOPHOSPHAMIDE
     Dosage: 700 MG, UNK
     Route: 041
     Dates: start: 20151218, end: 20151218
  20. GRANISETRON [Concomitant]
     Active Substance: GRANISETRON
     Dosage: 3 MG, 1X/2WEEKS
     Route: 041
     Dates: start: 20160129, end: 20160226
  21. ISOTONIC SODIUM CHLORIDE SOLUTION [Concomitant]
     Active Substance: SODIUM CHLORIDE
     Dosage: 50 ML, 1X/2WEEKS
     Route: 041
     Dates: start: 20160129, end: 20160226
  22. SEISHOKU [Concomitant]
     Active Substance: SODIUM CHLORIDE
     Dosage: 100 ML, QD
     Route: 041
     Dates: start: 20160311, end: 20160311
  23. EMEND [Concomitant]
     Active Substance: APREPITANT
     Dosage: 80 MG, QD
     Route: 048
     Dates: start: 20160129, end: 20160130
  24. BROTIZOLAM [Concomitant]
     Active Substance: BROTIZOLAM
     Dosage: 0.25 MG, QD
     Route: 048
     Dates: start: 20160226, end: 20160303
  25. MUCOSTA [Concomitant]
     Active Substance: REBAMIPIDE
     Dosage: 100 MG, QD
     Route: 048
     Dates: start: 20160226, end: 20160306
  26. ADRIACIN [Suspect]
     Active Substance: DOXORUBICIN HYDROCHLORIDE
     Indication: BREAST CANCER
     Dosage: 255 MG, UNK
     Route: 041
     Dates: start: 20160129, end: 20160129
  27. ADRIACIN [Suspect]
     Active Substance: DOXORUBICIN HYDROCHLORIDE
     Dosage: 255 MG, UNK
     Route: 041
     Dates: start: 20160226, end: 20160226
  28. CYCLOPHOSPHAMIDE. [Suspect]
     Active Substance: CYCLOPHOSPHAMIDE
     Indication: BREAST CANCER
     Dosage: 2550 MG, UNK
     Route: 041
     Dates: start: 20160129, end: 20160129
  29. DECADRON [Concomitant]
     Active Substance: DEXAMETHASONE
     Dosage: 4 MG, BID
     Route: 048
     Dates: start: 20160212, end: 20160214
  30. SEISHOKU [Concomitant]
     Active Substance: SODIUM CHLORIDE
     Dosage: 20 ML, QD
     Route: 042
     Dates: start: 20160307, end: 20160307
  31. CIPROXAN                           /00697202/ [Concomitant]
     Active Substance: CIPROFLOXACIN
     Dosage: 200 MG, BID
     Route: 048
     Dates: start: 20160131, end: 20160131
  32. PRIMPERAN [Concomitant]
     Active Substance: METOCLOPRAMIDE HYDROCHLORIDE
     Dosage: 6 MG, TID
     Route: 048
     Dates: start: 20160212, end: 20160216
  33. SENNA [Concomitant]
     Active Substance: SENNA LEAF\SENNOSIDES\SENNOSIDES A AND B
     Dosage: 0.5 G, QD
     Route: 048
     Dates: start: 20160212, end: 20160218
  34. MAGMITT [Concomitant]
     Active Substance: MAGNESIUM OXIDE
     Dosage: 500 MG, TID
     Route: 048
     Dates: start: 20160226, end: 20160303
  35. HIRUDOID                           /00723701/ [Concomitant]
     Active Substance: PENTOSAN POLYSULFATE SODIUM
     Dosage: 25 G, UNK
     Route: 061
     Dates: start: 20160311, end: 20160311
  36. LENDORMIN [Concomitant]
     Active Substance: BROTIZOLAM
     Dosage: 0.25 MG, QD
     Route: 048
     Dates: start: 20160311, end: 20160317
  37. CRAVIT [Concomitant]
     Active Substance: LEVOFLOXACIN
     Dosage: 500 MG, QD
     Route: 048
     Dates: start: 20160318, end: 20160318
  38. DOCETAXEL. [Suspect]
     Active Substance: DOCETAXEL
     Indication: BREAST CANCER
     Dosage: 105 MG, UNK
     Route: 041
     Dates: start: 20160311, end: 20160311
  39. SEISHOKU [Concomitant]
     Active Substance: SODIUM CHLORIDE
     Dosage: 10 ML, 1X/2WEEKS
     Route: 041
     Dates: start: 20160129, end: 20160226
  40. MANNITOL. [Concomitant]
     Active Substance: MANNITOL
     Dosage: 300 ML, QD
     Route: 041
     Dates: start: 20160307, end: 20160307
  41. SOLACET F [Concomitant]
     Dosage: 500 ML, QD
     Route: 041
     Dates: start: 20160307, end: 20160307
  42. CIPROXAN                           /00697202/ [Concomitant]
     Active Substance: CIPROFLOXACIN
     Dosage: 200 MG, TID
     Route: 048
     Dates: start: 20160129, end: 20160130
  43. SENNA [Concomitant]
     Active Substance: SENNA LEAF\SENNOSIDES\SENNOSIDES A AND B
     Dosage: 0.5 G, QD
     Route: 048
     Dates: start: 20160226, end: 20160303
  44. LOXOPROFEN [Concomitant]
     Active Substance: LOXOPROFEN
     Dosage: 50 MG, QD
     Route: 048
     Dates: start: 20160226, end: 20160306
  45. MAGMITT [Concomitant]
     Active Substance: MAGNESIUM OXIDE
     Dosage: 500 MG, TID
     Route: 048
     Dates: start: 20160311, end: 20160317
  46. SANPILO [Concomitant]
     Active Substance: PILOCARPINE HYDROCHLORIDE
     Dosage: 5 ML, QD
     Route: 047
     Dates: start: 20160308, end: 20160308
  47. CRAVIT [Concomitant]
     Active Substance: LEVOFLOXACIN
     Dosage: 5 ML, TID
     Route: 047
     Dates: start: 20160301, end: 20160301
  48. PROMAC /00024401/ [Concomitant]
     Active Substance: NITROFURANTOIN
     Dosage: 75 MG, BID
     Route: 048
     Dates: start: 20160311, end: 20160318
  49. DECADRON [Concomitant]
     Active Substance: DEXAMETHASONE
     Dosage: 4 MG, BID
     Route: 048
     Dates: start: 20160226, end: 20160228
  50. SENNA [Concomitant]
     Active Substance: SENNA LEAF\SENNOSIDES\SENNOSIDES A AND B
     Dosage: 0.5 G, QD
     Route: 048
     Dates: start: 20160129, end: 20160204
  51. CALONAL [Concomitant]
     Active Substance: ACETAMINOPHEN
     Dosage: 400 MG, TID
     Route: 048
     Dates: start: 20160318, end: 20160318
  52. ADRIACIN [Suspect]
     Active Substance: DOXORUBICIN HYDROCHLORIDE
     Dosage: 255 MG, UNK
     Route: 041
     Dates: start: 20160212, end: 20160212
  53. 5-FU                               /00098801/ [Suspect]
     Active Substance: FLUOROURACIL
     Indication: BREAST CANCER
     Dosage: 700 MG, UNK
     Route: 041
     Dates: start: 20151218, end: 20151218
  54. DECADRON [Concomitant]
     Active Substance: DEXAMETHASONE
     Dosage: 6.6 MG, QD
     Route: 041
     Dates: start: 20160301, end: 20160301
  55. DECADRON [Concomitant]
     Active Substance: DEXAMETHASONE
     Dosage: 4 MG, BID
     Route: 048
     Dates: start: 20160311, end: 20160313
  56. SEISHOKU [Concomitant]
     Active Substance: SODIUM CHLORIDE
     Dosage: 250 ML, QD
     Route: 041
     Dates: start: 20160129, end: 20160129
  57. SEISHOKU [Concomitant]
     Active Substance: SODIUM CHLORIDE
     Dosage: 100 ML, QD
     Route: 041
     Dates: start: 20160311, end: 20160311
  58. VOLTAREN [Concomitant]
     Active Substance: DICLOFENAC SODIUM
     Dosage: 50 MG, 5X/DAY
     Route: 054
     Dates: start: 20160129, end: 20160129
  59. PRIMPERAN [Concomitant]
     Active Substance: METOCLOPRAMIDE HYDROCHLORIDE
     Dosage: 5 MG, TID
     Route: 048
     Dates: start: 20160129, end: 20160202
  60. EMEND [Concomitant]
     Active Substance: APREPITANT
     Dosage: 80 MG, QD
     Route: 048
     Dates: start: 20160212, end: 20160213
  61. SENNA [Concomitant]
     Active Substance: SENNA LEAF\SENNOSIDES\SENNOSIDES A AND B
     Dosage: 0.5 G, QD
     Route: 048
     Dates: start: 20160311, end: 20160317
  62. GATIFLO [Concomitant]
     Active Substance: GATIFLOXACIN
     Dosage: 10 ML, UNK
     Route: 047
     Dates: start: 20160306, end: 20160306
  63. DECADRON [Concomitant]
     Active Substance: DEXAMETHASONE
     Dosage: 3.3 MG, 1X/2WEEKS
     Route: 041
     Dates: start: 20160129, end: 20160226
  64. EMEND [Concomitant]
     Active Substance: APREPITANT
     Dosage: 80 MG, QD
     Route: 048
     Dates: start: 20160226, end: 20160228
  65. REBAMIPIDE [Concomitant]
     Active Substance: REBAMIPIDE
     Dosage: 100 MG, TID
     Route: 048
     Dates: start: 20160129, end: 20160131

REACTIONS (2)
  - Interstitial lung disease [Recovered/Resolved]
  - Chemotherapy [Unknown]

NARRATIVE: CASE EVENT DATE: 20160212
